FAERS Safety Report 8421248 (Version 9)
Quarter: 2012Q4

REPORT INFORMATION
  Report Type: 
  Country: US (occurrence: US)
  Receive Date: 20120209
  Receipt Date: 20120904
  Transmission Date: 20130627
  Serious: Yes (Life-Threatening, Hospitalization, Other)
  Sender: FDA-Public Use
  Company Number: US-009507513-2011SP048229

PATIENT

DRUGS (1)
  1. NUVARING [Suspect]
     Indication: CONTRACEPTION
     Dates: start: 200901, end: 20100303

REACTIONS (8)
  - Chest pain [Not Recovered/Not Resolved]
  - Pulmonary embolism [Recovered/Resolved]
  - Coagulopathy [Not Recovered/Not Resolved]
  - Dysmenorrhoea [Unknown]
  - Headache [Unknown]
  - Depression [Unknown]
  - Weight increased [Unknown]
  - Vaginal infection [Unknown]
